FAERS Safety Report 19898596 (Version 1)
Quarter: 2021Q3

REPORT INFORMATION
  Report Type: Spontaneous
  Country: US (occurrence: US)
  Receive Date: 20210930
  Receipt Date: 20210930
  Transmission Date: 20211014
  Serious: No
  Sender: FDA-Public Use
  Company Number: US-BION-009406

PATIENT
  Sex: Female

DRUGS (1)
  1. LOPERAMIDE 2MG [Suspect]
     Active Substance: LOPERAMIDE
     Indication: PRODUCT USED FOR UNKNOWN INDICATION
     Dosage: FOR 4?5 DAYS

REACTIONS (1)
  - Faeces discoloured [Not Recovered/Not Resolved]
